FAERS Safety Report 5390077-1 (Version None)
Quarter: 2007Q3

REPORT INFORMATION
  Report Type: 
  Country: None (occurrence: None)
  Receive Date: 20070718
  Receipt Date: 20070711
  Transmission Date: 20080115
  Serious: Yes (Other)
  Sender: FDA-Public Use
  Company Number: A0663319A

PATIENT
  Age: 46 Year
  Sex: Male

DRUGS (16)
  1. REQUIP [Suspect]
     Indication: RESTLESS LEGS SYNDROME
     Dosage: .25MG PER DAY
     Route: 048
     Dates: start: 20070610
  2. ATENOL [Concomitant]
  3. CLARINEX [Concomitant]
  4. ASPIRIN [Concomitant]
  5. MULTI-VITAMIN [Concomitant]
  6. VERAPAMIL [Concomitant]
  7. METFORMIN HCL [Concomitant]
  8. PREVACID [Concomitant]
  9. DIOVAN [Concomitant]
  10. NOVOLOG [Concomitant]
  11. INSULIN [Concomitant]
  12. SINGULAIR [Concomitant]
  13. LASIX [Concomitant]
  14. LIPITOR [Concomitant]
  15. ADVAIR DISKUS 100/50 [Concomitant]
  16. FLONASE [Concomitant]

REACTIONS (5)
  - DIZZINESS [None]
  - DYSPNOEA [None]
  - HALLUCINATION [None]
  - HYPERHIDROSIS [None]
  - PALPITATIONS [None]
